FAERS Safety Report 9901098 (Version 9)
Quarter: 2016Q2

REPORT INFORMATION
  Report Type: Spontaneous
  Country: US (occurrence: US)
  Receive Date: 20140217
  Receipt Date: 20160414
  Transmission Date: 20160815
  Serious: Yes (Other)
  Sender: FDA-Public Use
  Company Number: US-PFIZER INC-2014039049

PATIENT
  Age: 61 Year
  Sex: Female
  Weight: 63 kg

DRUGS (6)
  1. PROVERA [Suspect]
     Active Substance: MEDROXYPROGESTERONE ACETATE
     Indication: HORMONE REPLACEMENT THERAPY
     Dosage: 2.5 MG, 1X/DAY
     Route: 048
     Dates: start: 1994, end: 200701
  2. FUROSEMIDE. [Concomitant]
     Active Substance: FUROSEMIDE
     Indication: HYPERTENSION
     Dosage: 10 MG, 1X/DAY
  3. PROVERA [Suspect]
     Active Substance: MEDROXYPROGESTERONE ACETATE
     Indication: LIFE SUPPORT
     Dosage: UNK
     Dates: start: 200706
  4. IBUPROFEN. [Concomitant]
     Active Substance: IBUPROFEN
     Indication: SPINAL DISORDER
     Dosage: UNK
     Dates: start: 1990
  5. PREMARIN [Suspect]
     Active Substance: ESTROGENS, CONJUGATED
     Indication: HORMONE REPLACEMENT THERAPY
     Dosage: 0.625 MG, 1X/DAY
     Route: 048
     Dates: start: 1994, end: 200701
  6. PREMARIN [Suspect]
     Active Substance: ESTROGENS, CONJUGATED
     Indication: LIFE SUPPORT
     Dosage: UNK
     Dates: start: 200706

REACTIONS (12)
  - Anorectal infection [Recovered/Resolved]
  - Muscle spasms [Unknown]
  - Weight decreased [Not Recovered/Not Resolved]
  - Pain [Unknown]
  - Hormone level abnormal [Unknown]
  - Insomnia [Unknown]
  - Emotional distress [Unknown]
  - Vaginal infection [Unknown]
  - Feeding disorder [Unknown]
  - Malaise [Unknown]
  - Dyspepsia [Unknown]
  - Functional gastrointestinal disorder [Unknown]

NARRATIVE: CASE EVENT DATE: 200701
